FAERS Safety Report 4317358-4 (Version None)
Quarter: 2004Q1

REPORT INFORMATION
  Report Type: 
  Country: None (occurrence: None)
  Receive Date: 20040305
  Receipt Date: 20031208
  Transmission Date: 20041129
  Serious: No
  Sender: FDA-Public Use
  Company Number: US-SHR-03-018403

PATIENT
  Age: 61 Year
  Sex: Female

DRUGS (4)
  1. CAMPATH [Suspect]
     Dosage: 3 MG, 1 DOSE; 10 MG, 1 DOSE; 30 MG, 1 DOSE
     Dates: start: 20031201, end: 20031201
  2. CAMPATH [Suspect]
     Dosage: 3 MG, 1 DOSE; 10 MG, 1 DOSE; 30 MG, 1 DOSE
     Dates: start: 20031203, end: 20031203
  3. CAMPATH [Suspect]
     Dosage: 3 MG, 1 DOSE; 10 MG, 1 DOSE; 30 MG, 1 DOSE
     Dates: start: 20031205, end: 20031205
  4. DIPHENHYDRAMINE (BENADRYL) (DIPHENHYDRAMINE) [Concomitant]

REACTIONS (4)
  - BRONCHOSPASM [None]
  - ERYTHEMA [None]
  - HYPERSENSITIVITY [None]
  - URTICARIA GENERALISED [None]
